FAERS Safety Report 15653617 (Version 1)
Quarter: 2018Q4

REPORT INFORMATION
  Report Type: Report from Study
  Country: DE (occurrence: DE)
  Receive Date: 20181124
  Receipt Date: 20181124
  Transmission Date: 20190205
  Serious: Yes (Life-Threatening)
  Sender: FDA-Public Use
  Company Number: DE-TEVA-2018-DE-977987

PATIENT
  Age: 75 Year
  Sex: Female
  Weight: 76 kg

DRUGS (7)
  1. AVASTIN [Suspect]
     Active Substance: BEVACIZUMAB
     Dosage: DAILY DOSE: 1132 MG MILLGRAM(S) EVERY 3 WEEKS
     Route: 042
     Dates: start: 20170713, end: 20170713
  2. PANTOZOL (BELGIUM) [Concomitant]
     Route: 048
  3. CARBOPLATIN. [Suspect]
     Active Substance: CARBOPLATIN
     Indication: OVARIAN CANCER
     Dosage: 450-552 MG
     Dates: start: 20160630, end: 20161013
  4. AVASTIN [Suspect]
     Active Substance: BEVACIZUMAB
     Indication: OVARIAN CANCER
     Dosage: DAILY DOSE: 1175 MG MILLGRAM(S) EVERY 3 WEEKS
     Route: 042
     Dates: start: 20160630, end: 20160630
  5. JANUVIA [Concomitant]
     Active Substance: SITAGLIPTIN PHOSPHATE
     Indication: DIABETES MELLITUS
     Route: 048
  6. PACLITAXEL. [Suspect]
     Active Substance: PACLITAXEL
     Indication: OVARIAN CANCER
     Dosage: 315-320 MG
     Route: 042
     Dates: start: 20160630, end: 20161013
  7. DEXAMETHASONE. [Concomitant]
     Active Substance: DEXAMETHASONE
     Dosage: ALONG WITH CHEMOTHERAPY
     Route: 048
     Dates: start: 20160630, end: 20161126

REACTIONS (2)
  - Drug ineffective [Unknown]
  - No adverse event [Unknown]
